FAERS Safety Report 10074078 (Version 1)
Quarter: 2014Q2

REPORT INFORMATION
  Report Type: Spontaneous
  Country: US (occurrence: US)
  Receive Date: 20140411
  Receipt Date: 20140411
  Transmission Date: 20141212
  Serious: No
  Sender: FDA-Public Use
  Company Number: US-SA-2014SA008422

PATIENT
  Sex: Male

DRUGS (1)
  1. ALLEGRA D [Suspect]
     Indication: HYPERSENSITIVITY
     Dosage: DOSE:180 UNIT(S)
     Route: 048
     Dates: start: 20140118

REACTIONS (1)
  - Drug ineffective [Unknown]
